FAERS Safety Report 9420998 (Version 1)
Quarter: 2013Q3

REPORT INFORMATION
  Report Type: Spontaneous
  Country: IN (occurrence: IN)
  Receive Date: 20130725
  Receipt Date: 20130725
  Transmission Date: 20140515
  Serious: Yes (Hospitalization, Other)
  Sender: FDA-Public Use
  Company Number: IN-ROXANE LABORATORIES, INC.-2013-RO-01219RO

PATIENT
  Age: 65 Year
  Sex: Female

DRUGS (5)
  1. CLOPIDOGREL [Suspect]
     Dosage: 75 MG
  2. AMLODIPINE [Suspect]
     Dosage: 10 MG
  3. FUROSEMIDE [Suspect]
     Dosage: 80 MG
  4. ATORVASTATIN [Suspect]
     Dosage: 10 MG
  5. INSULIN [Suspect]
     Indication: TYPE 2 DIABETES MELLITUS

REACTIONS (3)
  - Rhabdomyolysis [Recovered/Resolved]
  - Renal failure acute [Recovered/Resolved]
  - Hypokalaemia [Unknown]
